FAERS Safety Report 6895623-4 (Version None)
Quarter: 2010Q3

REPORT INFORMATION
  Report Type: 
  Country: None (occurrence: None)
  Receive Date: 20100730
  Receipt Date: 20100730
  Transmission Date: 20110219
  Serious: No
  Sender: FDA-Public Use
  Company Number: None

PATIENT
  Sex: Male
  Weight: 129.2752 kg

DRUGS (1)
  1. SOLUBLE FIBER THERAPY ONE TABLESPOON AT LEAST ONCE A DAY CVS PHARMACY [Suspect]
     Indication: ABNORMAL FAECES
     Dosage: ONE TABLESPOON AT LEAST ONCE A DA
     Dates: start: 20100414, end: 20100526

REACTIONS (1)
  - PRODUCT LABEL ISSUE [None]
